FAERS Safety Report 6415083-7 (Version None)
Quarter: 2009Q4

REPORT INFORMATION
  Report Type: 
  Country: None (occurrence: None)
  Receive Date: 20091022
  Receipt Date: 20091009
  Transmission Date: 20100525
  Serious: Yes (Disabling)
  Sender: FDA-Public Use
  Company Number: 007770

PATIENT
  Age: 63 Year
  Sex: Male

DRUGS (3)
  1. PLETAL [Suspect]
     Indication: INTERMITTENT CLAUDICATION
     Dosage: 100 MG, BID ORAL
     Route: 048
     Dates: start: 20090801
  2. ASPIRIN [Concomitant]
  3. LOVASTATIN [Concomitant]

REACTIONS (1)
  - TENDON RUPTURE [None]
